FAERS Safety Report 19504800 (Version 1)
Quarter: 2021Q3

REPORT INFORMATION
  Report Type: Report from Study
  Country: IT (occurrence: IT)
  Receive Date: 20210708
  Receipt Date: 20210708
  Transmission Date: 20211014
  Serious: Yes (Other)
  Sender: FDA-Public Use
  Company Number: IT-TEVA-2021-IT-1930292

PATIENT
  Age: 85 Year
  Sex: Female

DRUGS (7)
  1. BISOPROLOL FUMARATE. [Suspect]
     Active Substance: BISOPROLOL FUMARATE
     Dosage: 1.25 MG
     Dates: start: 20210514, end: 20210517
  2. MEMANTINE HYDROCHLORIDE. [Concomitant]
     Active Substance: MEMANTINE HYDROCHLORIDE
     Dosage: 10 MG
  3. LASIX [Concomitant]
     Active Substance: FUROSEMIDE
  4. NORVASC [Concomitant]
     Active Substance: AMLODIPINE BESYLATE
  5. CIPRALEX [Concomitant]
     Active Substance: ESCITALOPRAM OXALATE
  6. LANSOPRAZOLO LUPIN 30 MG COMPRESSE OROSOLUBILI [Concomitant]
  7. TAREG 160 MG COMPRESSE RIVESTITE CON FILM [Concomitant]

REACTIONS (2)
  - Cardiac failure [Recovering/Resolving]
  - Sinus bradycardia [Recovering/Resolving]

NARRATIVE: CASE EVENT DATE: 20210517
